FAERS Safety Report 8360153-X (Version None)
Quarter: 2012Q2

REPORT INFORMATION
  Report Type: 
  Country: None (occurrence: None)
  Receive Date: 20120515
  Receipt Date: 20110617
  Transmission Date: 20120825
  Serious: No
  Sender: FDA-Public Use
  Company Number: US-ALEXION-A201100898

PATIENT
  Sex: Female
  Weight: 75.011 kg

DRUGS (10)
  1. LOESTRIN FE 1/20 [Concomitant]
     Route: 048
  2. PANTOPRAZOLE SODIUM [Concomitant]
     Dosage: 40 MG, QD
     Route: 048
  3. CITALOPRAM HYDROBROMIDE [Concomitant]
     Route: 048
  4. SOLIRIS [Suspect]
     Indication: PAROXYSMAL NOCTURNAL HAEMOGLOBINURIA
     Dosage: UNK
     Route: 042
  5. LEXAPRO [Concomitant]
     Dosage: 10 MG, QD
     Route: 048
  6. MULTI-VITAMIN [Concomitant]
     Dosage: 1 TABLET, QD
     Route: 048
  7. FOLIC ACID [Concomitant]
     Indication: PAROXYSMAL NOCTURNAL HAEMOGLOBINURIA
     Dosage: 1 TABLET, QD
     Route: 048
  8. SOLIRIS [Suspect]
     Dosage: 1200 MG, Q2W
     Route: 042
     Dates: start: 20101001
  9. WELLBUTRIN [Concomitant]
     Dosage: UNK
  10. EXJADE [Suspect]
     Indication: IRON OVERLOAD
     Dosage: 125 MG, QD
     Route: 048

REACTIONS (12)
  - SPUTUM INCREASED [None]
  - COUGH [None]
  - FLUID RETENTION [None]
  - HAEMOGLOBIN DECREASED [None]
  - OEDEMA PERIPHERAL [None]
  - PROTEIN URINE PRESENT [None]
  - ABDOMINAL DISTENSION [None]
  - ANXIETY [None]
  - ABDOMINAL PAIN UPPER [None]
  - INSOMNIA [None]
  - THROAT IRRITATION [None]
  - NAUSEA [None]
